FAERS Safety Report 16840057 (Version 1)
Quarter: 2019Q4

REPORT INFORMATION
  Report Type: Spontaneous
  Country: US (occurrence: US)
  Receive Date: 20190920
  Receipt Date: 20190920
  Transmission Date: 20200122
  Serious: Yes (Hospitalization)
  Sender: FDA-Public Use
  Company Number: None

PATIENT
  Age: 38 Year
  Sex: Female
  Weight: 75 kg

DRUGS (2)
  1. COLLOIDAL SILVER [Suspect]
     Active Substance: SILVER
     Dates: start: 20190603, end: 20190919
  2. COLLOIDAL SILVER [Suspect]
     Active Substance: SILVER
     Dates: start: 20190603, end: 20190919

REACTIONS (1)
  - Seizure [None]

NARRATIVE: CASE EVENT DATE: 20190919
